FAERS Safety Report 11660798 (Version 1)
Quarter: 2015Q4

REPORT INFORMATION
  Report Type: Report from Study
  Country: CA (occurrence: CA)
  Receive Date: 20151026
  Receipt Date: 20151026
  Transmission Date: 20160304
  Serious: Yes (Other)
  Sender: FDA-Public Use
  Company Number: CA-ROCHE-1650486

PATIENT

DRUGS (4)
  1. FLUOROURACIL. [Suspect]
     Active Substance: FLUOROURACIL
     Indication: COLORECTAL CANCER METASTATIC
     Dosage: 7 CYCLE WITH AVASTIN/3 CYCLE WITHOUT AVASTIN
     Route: 065
     Dates: start: 20140625, end: 20150421
  2. AVASTIN [Suspect]
     Active Substance: BEVACIZUMAB
     Indication: COLORECTAL CANCER METASTATIC
     Dosage: 7 CYCLES
     Route: 065
     Dates: start: 20140625
  3. IRINOTECAN [Suspect]
     Active Substance: IRINOTECAN
     Indication: COLORECTAL CANCER METASTATIC
     Dosage: 7 CYCLE WITH BEVACIZUMAB/3 CYCLE WITHOUT BEVACIZUMAB
     Route: 065
     Dates: start: 20140625, end: 20150421
  4. FOLINIC ACID [Suspect]
     Active Substance: LEUCOVORIN
     Indication: COLORECTAL CANCER METASTATIC
     Dosage: 7 CYCLE WITH BEVACIZUMAB/3 CYCLE WITHOUT BEVACIZUMAB
     Route: 065
     Dates: start: 20140625, end: 20150421

REACTIONS (1)
  - Renal failure [Unknown]
